FAERS Safety Report 22653133 (Version 10)
Quarter: 2024Q1

REPORT INFORMATION
  Report Type: Report from Study
  Country: US (occurrence: US)
  Receive Date: 20230629
  Receipt Date: 20240301
  Transmission Date: 20240410
  Serious: Yes (Hospitalization, Other)
  Sender: FDA-Public Use
  Company Number: US-002147023-NVSC2023US147319

PATIENT
  Age: 55 Year
  Sex: Female

DRUGS (1)
  1. KESIMPTA [Suspect]
     Active Substance: OFATUMUMAB
     Indication: Relapsing multiple sclerosis
     Dosage: 20 MG, QMO
     Route: 058
     Dates: start: 20230615

REACTIONS (14)
  - Pneumonia [Unknown]
  - Peripheral swelling [Unknown]
  - Dizziness [Unknown]
  - Pain [Unknown]
  - Injection site haemorrhage [Unknown]
  - Malaise [Unknown]
  - Urinary tract infection [Unknown]
  - Cystocele [Unknown]
  - Gait disturbance [Unknown]
  - Pain in extremity [Unknown]
  - Device leakage [Unknown]
  - Drug dose omission by device [Unknown]
  - Accidental exposure to product [Unknown]
  - Wrong technique in device usage process [Unknown]

NARRATIVE: CASE EVENT DATE: 20240226
